FAERS Safety Report 16943391 (Version 1)
Quarter: 2019Q4

REPORT INFORMATION
  Report Type: Other
  Country: PT (occurrence: PT)
  Receive Date: 20191022
  Receipt Date: 20191022
  Transmission Date: 20200122
  Serious: Yes (Hospitalization)
  Sender: FDA-Public Use
  Company Number: PT-APTAPHARMA INC.-2075905

PATIENT
  Sex: Male

DRUGS (4)
  1. ABUSE OF UNSPECIFIED NSAID FOR AT LEAST 20 YEARS. [Suspect]
     Active Substance: UNSPECIFIED INGREDIENT
     Route: 065
  2. RILMENIDIN [Concomitant]
     Active Substance: RILMENIDINE
     Route: 065
  3. ALLOPURINOL. [Suspect]
     Active Substance: ALLOPURINOL
     Route: 065
  4. IBUPROFEN ORAL [Suspect]
     Active Substance: IBUPROFEN
     Indication: PRODUCT USED FOR UNKNOWN INDICATION
     Route: 065

REACTIONS (6)
  - Chronic kidney disease [Recovering/Resolving]
  - Arteriosclerosis [Recovering/Resolving]
  - Pyrexia [Recovered/Resolved]
  - Drug abuse [Unknown]
  - Tubulointerstitial nephritis [Recovering/Resolving]
  - Self-medication [Unknown]
